FAERS Safety Report 7867368-5 (Version None)
Quarter: 2011Q4

REPORT INFORMATION
  Report Type: 
  Country: None (occurrence: None)
  Receive Date: 20111021
  Receipt Date: 20111018
  Transmission Date: 20120403
  Serious: Yes (Death, Hospitalization)
  Sender: FDA-Public Use
  Company Number: 2011SP046196

PATIENT
  Age: 69 Year
  Sex: Male

DRUGS (9)
  1. VALPROATE SODIUM [Suspect]
     Indication: PRODUCT USED FOR UNKNOWN INDICATION
     Dosage: 400 MG
     Dates: start: 20110107, end: 20110213
  2. VALPROATE SODIUM [Suspect]
     Indication: PRODUCT USED FOR UNKNOWN INDICATION
     Dosage: 400 MG
     Dates: start: 20101016, end: 20110106
  3. VENLAFAXINE [Suspect]
     Indication: PRODUCT USED FOR UNKNOWN INDICATION
     Dosage: 300 MG ; 75 MG
     Dates: start: 20110125, end: 20110213
  4. VENLAFAXINE [Suspect]
     Indication: PRODUCT USED FOR UNKNOWN INDICATION
     Dosage: 300 MG ; 75 MG
     Dates: start: 20110112, end: 20110117
  5. VENLAFAXINE [Suspect]
     Indication: PRODUCT USED FOR UNKNOWN INDICATION
     Dosage: 300 MG ; 75 MG
     Dates: start: 20110118, end: 20110124
  6. REMERON [Suspect]
     Indication: PRODUCT USED FOR UNKNOWN INDICATION
     Dosage: 45 MG ; 30 MG
     Dates: start: 20101022, end: 20110213
  7. REMERON [Suspect]
     Indication: PRODUCT USED FOR UNKNOWN INDICATION
     Dosage: 45 MG ; 30 MG
     Dates: start: 20101018, end: 20101021
  8. QUETIAPINE [Concomitant]
  9. PRAVASTATIN SODIUM [Suspect]
     Indication: PRODUCT USED FOR UNKNOWN INDICATION
     Dosage: 20 MG
     Dates: start: 20101018, end: 20110213

REACTIONS (3)
  - COMPLETED SUICIDE [None]
  - SOCIAL AVOIDANT BEHAVIOUR [None]
  - ALCOHOL USE [None]
